FAERS Safety Report 11101464 (Version 9)
Quarter: 2015Q4

REPORT INFORMATION
  Report Type: Spontaneous
  Country: US (occurrence: US)
  Receive Date: 20150508
  Receipt Date: 20151211
  Transmission Date: 20160304
  Serious: Yes (Other)
  Sender: FDA-Public Use
  Company Number: US-PFIZER INC-2015146013

PATIENT
  Age: 66 Year
  Sex: Female
  Weight: 79 kg

DRUGS (19)
  1. XELJANZ [Suspect]
     Active Substance: TOFACITINIB CITRATE
     Dosage: 5 MG, 2X/DAY
     Route: 048
     Dates: start: 201409
  2. PREDNISONE. [Suspect]
     Active Substance: PREDNISONE
     Indication: RHEUMATOID ARTHRITIS
     Dosage: 2.5 MG, 1X/DAY
     Dates: start: 201410
  3. VITAMIN B12 [Concomitant]
     Active Substance: CYANOCOBALAMIN
     Dosage: 2500 MG, 1X/DAY
  4. PREDNISONE. [Suspect]
     Active Substance: PREDNISONE
     Dosage: 4X5 MG TABLETS BY MOUTH IN THE MORNING
     Route: 048
     Dates: start: 20151015
  5. TOVIAZ [Concomitant]
     Active Substance: FESOTERODINE FUMARATE
     Indication: HYPOTONIC URINARY BLADDER
     Dosage: 8 MG, 1X/DAY
     Route: 048
     Dates: start: 201501
  6. CRANBERRY. [Concomitant]
     Active Substance: CRANBERRY
     Dosage: 500 MG, UNK
  7. PREDNISONE. [Suspect]
     Active Substance: PREDNISONE
     Dosage: 5 MG, AS NEEDED (ON AND OFF )
  8. CALCIUM [Concomitant]
     Active Substance: CALCIUM
     Dosage: 600 MG, 2X/DAY
  9. ARAVA [Concomitant]
     Active Substance: LEFLUNOMIDE
  10. OXYCODONE [Concomitant]
     Active Substance: OXYCODONE
     Indication: BACK PAIN
     Dosage: 1 DAILY AS NEEDED (5-325MG TABLET)
     Route: 048
     Dates: start: 201306
  11. CRANBERRY. [Concomitant]
     Active Substance: CRANBERRY
     Dosage: 4200 MG, 1X/DAY
  12. VITAMIN D3 [Concomitant]
     Active Substance: CHOLECALCIFEROL
     Dosage: 2000 MG, 2X/DAY
  13. FISH OIL [Concomitant]
     Active Substance: FISH OIL
     Dosage: 1000 MG, 1X/DAY
  14. VITAMIN D3 [Concomitant]
     Active Substance: CHOLECALCIFEROL
     Dosage: 2000 IU
  15. BIOTIN/CALCIUM PHOSPHATE DIBASIC [Concomitant]
     Dosage: 5000 MG, 1X/DAY
  16. GABAPENTIN. [Concomitant]
     Active Substance: GABAPENTIN
     Dosage: 300 MG, 1X/DAY
  17. XELJANZ [Suspect]
     Active Substance: TOFACITINIB CITRATE
     Indication: RHEUMATOID ARTHRITIS
     Dosage: 5 MG, 2X/DAY
     Route: 048
     Dates: start: 201409
  18. XELJANZ [Suspect]
     Active Substance: TOFACITINIB CITRATE
     Dosage: 5 MG, 2X/DAY
     Route: 048
     Dates: start: 201409
  19. NEURONTIN [Concomitant]
     Active Substance: GABAPENTIN
     Indication: SCIATICA
     Dosage: 300 MG, 1X/DAY
     Route: 048
     Dates: start: 201306

REACTIONS (3)
  - Rheumatoid arthritis [Not Recovered/Not Resolved]
  - Condition aggravated [Not Recovered/Not Resolved]
  - Drug effect incomplete [Unknown]

NARRATIVE: CASE EVENT DATE: 201409
